FAERS Safety Report 22869486 (Version 2)
Quarter: 2023Q4

REPORT INFORMATION
  Report Type: Spontaneous
  Country: US (occurrence: US)
  Receive Date: 20230826
  Receipt Date: 20231014
  Transmission Date: 20240109
  Serious: No
  Sender: FDA-Public Use
  Company Number: US-UNITED THERAPEUTICS-UNT-2023-023914

PATIENT
  Sex: Female
  Weight: 70.295 kg

DRUGS (12)
  1. REMODULIN [Suspect]
     Active Substance: TREPROSTINIL
     Indication: Pulmonary arterial hypertension
     Dosage: 0.090 ?G/KG, CONTINUING
     Route: 041
  2. REMODULIN [Suspect]
     Active Substance: TREPROSTINIL
     Dosage: UNK, CONTINUING
     Route: 041
     Dates: start: 20200908
  3. REMODULIN [Suspect]
     Active Substance: TREPROSTINIL
     Indication: Pulmonary arterial hypertension
     Dosage: 0.092 ?G/KG, CONTINUING
     Route: 041
  4. REMODULIN [Suspect]
     Active Substance: TREPROSTINIL
     Dosage: UNK, CONTINUING
     Route: 041
  5. SILDENAFIL [Concomitant]
     Active Substance: SILDENAFIL
     Indication: Product used for unknown indication
     Route: 065
  6. TUMS CHEWIES [Concomitant]
     Indication: Product used for unknown indication
     Route: 065
  7. IRON [Concomitant]
     Active Substance: IRON
     Indication: Product used for unknown indication
     Dosage: UNK
     Route: 065
  8. OXYGEN [Concomitant]
     Active Substance: OXYGEN
     Indication: Product used for unknown indication
     Dosage: UNK
     Route: 065
  9. TYLENOL [Concomitant]
     Active Substance: ACETAMINOPHEN
     Indication: Product used for unknown indication
     Dosage: UNK
     Route: 065
  10. OPSUMIT [Concomitant]
     Active Substance: MACITENTAN
     Indication: Product used for unknown indication
     Dosage: UNK
     Route: 065
  11. BENADRYL [Concomitant]
     Active Substance: DIPHENHYDRAMINE HYDROCHLORIDE
     Indication: Product used for unknown indication
     Dosage: UNK
     Route: 065
  12. LOPERAMIDE [Concomitant]
     Active Substance: LOPERAMIDE
     Indication: Product used for unknown indication
     Dosage: UNK
     Route: 065

REACTIONS (13)
  - Pain in extremity [Unknown]
  - Pain in jaw [Unknown]
  - Diarrhoea [Unknown]
  - Dry mouth [Unknown]
  - Catheterisation cardiac abnormal [Unknown]
  - Feeling cold [Unknown]
  - Hypoaesthesia [Unknown]
  - Device connection issue [Recovered/Resolved]
  - Device leakage [Recovered/Resolved]
  - Injection site haemorrhage [Recovered/Resolved]
  - Feeling abnormal [Unknown]
  - Heavy menstrual bleeding [Unknown]
  - Anaemia [Unknown]

NARRATIVE: CASE EVENT DATE: 20230101
